FAERS Safety Report 5961041-6 (Version None)
Quarter: 2008Q4

REPORT INFORMATION
  Report Type: 
  Country: None (occurrence: None)
  Receive Date: 20081121
  Receipt Date: 20080815
  Transmission Date: 20090506
  Serious: Yes (Disabling, Other)
  Sender: FDA-Public Use
  Company Number: A0742855A

PATIENT
  Age: 42 Year
  Sex: Female

DRUGS (5)
  1. ARRANON [Suspect]
     Dosage: 1500MGM2 VARIABLE DOSE
     Route: 042
     Dates: start: 20080601
  2. METHOTREXATE [Concomitant]
     Route: 037
  3. CYTARABINE [Concomitant]
     Route: 037
  4. HYDROCORTISONE [Concomitant]
     Route: 037
  5. LEVOFLOXACIN [Concomitant]

REACTIONS (2)
  - HYPOAESTHESIA [None]
  - NEUROPATHY PERIPHERAL [None]
